FAERS Safety Report 5385706-2 (Version None)
Quarter: 2007Q3

REPORT INFORMATION
  Report Type: 
  Country: None (occurrence: None)
  Receive Date: 20070712
  Receipt Date: 20070702
  Transmission Date: 20080115
  Serious: Yes (Death, Other)
  Sender: FDA-Public Use
  Company Number: US-PFIZER INC-2006151941

PATIENT
  Sex: Female
  Weight: 78 kg

DRUGS (3)
  1. CELEBREX [Suspect]
     Indication: ARTHRITIS
     Route: 048
     Dates: start: 20040930, end: 20041017
  2. BEXTRA [Suspect]
     Indication: ARTHRITIS
     Dates: start: 20041001, end: 20041017
  3. VIOXX [Suspect]
     Indication: ARTHRITIS
     Route: 048
     Dates: start: 20030101, end: 20040901

REACTIONS (1)
  - MYOCARDIAL INFARCTION [None]
